FAERS Safety Report 6773289-1 (Version None)
Quarter: 2010Q2

REPORT INFORMATION
  Report Type: 
  Country: None (occurrence: None)
  Receive Date: 20100611
  Receipt Date: 20100528
  Transmission Date: 20101027
  Serious: Yes (Death, Hospitalization)
  Sender: FDA-Public Use
  Company Number: 011490

PATIENT
  Age: 52 Year
  Sex: Male
  Weight: 73 kg

DRUGS (2)
  1. KEPPRA [Suspect]
     Indication: CONVULSION
     Dosage: (3500 MG, 1000MG AM;2500MG PM ORAL)), (3500 MG, 1000MG AT 8AM AND 2PM AND 1500MG QHS), (3000 MG, 3X1
     Route: 048
     Dates: start: 20100505, end: 20100505
  2. KEPPRA [Suspect]
     Indication: CONVULSION
     Dosage: (3500 MG, 1000MG AM;2500MG PM ORAL)), (3500 MG, 1000MG AT 8AM AND 2PM AND 1500MG QHS), (3000 MG, 3X1
     Route: 048
     Dates: start: 20040501

REACTIONS (8)
  - ACCIDENTAL OVERDOSE [None]
  - AORTIC VALVE CALCIFICATION [None]
  - AORTIC VALVE STENOSIS [None]
  - ARRHYTHMIA [None]
  - CONFUSIONAL STATE [None]
  - DELUSION [None]
  - DRUG DISPENSING ERROR [None]
  - MYOCARDIAL INFARCTION [None]
